FAERS Safety Report 5415459-0 (Version None)
Quarter: 2007Q3

REPORT INFORMATION
  Report Type: 
  Country: None (occurrence: None)
  Receive Date: 20070813
  Receipt Date: 20070813
  Transmission Date: 20080115
  Serious: Yes (Life-Threatening, Hospitalization)
  Sender: FDA-Public Use
  Company Number: None

PATIENT
  Age: 54 Year
  Sex: Female
  Weight: 70 kg

DRUGS (2)
  1. LYRICA [Suspect]
     Indication: CONVULSION
     Dosage: 150MG TWICE A DAY PO
     Route: 048
     Dates: start: 20070605, end: 20070802
  2. LYRICA [Suspect]
     Indication: DIABETIC ULCER
     Dosage: 150MG TWICE A DAY PO
     Route: 048
     Dates: start: 20070605, end: 20070802

REACTIONS (3)
  - MALAISE [None]
  - NERVOUSNESS [None]
  - RENAL FAILURE [None]
